FAERS Safety Report 7063366-2 (Version None)
Quarter: 2010Q4

REPORT INFORMATION
  Report Type: 
  Country: None (occurrence: None)
  Receive Date: 20101026
  Receipt Date: 20100719
  Transmission Date: 20110411
  Serious: Yes (Other)
  Sender: FDA-Public Use
  Company Number: US-PFIZER INC-2010090355

PATIENT
  Sex: Male
  Weight: 84.807 kg

DRUGS (3)
  1. LIPITOR [Suspect]
     Indication: STENT PLACEMENT
     Dosage: 40 MG, 1X/DAY
     Route: 048
     Dates: start: 20100101
  2. ACETYLSALICYLIC ACID [Concomitant]
     Indication: ANTICOAGULANT THERAPY
     Dosage: 81 MG, 1X/DAY
     Route: 048
  3. EFFIENT [Concomitant]
     Indication: STENT PLACEMENT
     Dosage: 10 MG, 1X/DAY
     Route: 048

REACTIONS (2)
  - ALANINE AMINOTRANSFERASE INCREASED [None]
  - ASPARTATE AMINOTRANSFERASE INCREASED [None]
